FAERS Safety Report 16721365 (Version 1)
Quarter: 2019Q3

REPORT INFORMATION
  Report Type: Spontaneous
  Country: DE (occurrence: DE)
  Receive Date: 20190820
  Receipt Date: 20190820
  Transmission Date: 20191005
  Serious: Yes (Hospitalization)
  Sender: FDA-Public Use
  Company Number: DE-TEVA-2019-DE-1093249

PATIENT
  Age: 63 Year
  Sex: Female

DRUGS (17)
  1. PALLADON [Concomitant]
     Active Substance: HYDROMORPHONE
     Dosage: 6 MG, 1-0-1-0
  2. EFFENTORA [Concomitant]
     Active Substance: FENTANYL CITRATE
     Dosage: 100 MICROGRAM, NEED
     Route: 060
  3. BERODUAL [Concomitant]
     Active Substance: FENOTEROL HYDROBROMIDE\IPRATROPIUM BROMIDE
     Dosage: NK MG, 1-0-1-0
  4. METAMIZOL [Concomitant]
     Active Substance: METAMIZOLE SODIUM
     Dosage: NK MG, 30-30-30-30, DROPS, 30 GTT
  5. CISPLATIN. [Suspect]
     Active Substance: CISPLATIN
     Dosage: NK MG, NK; LAST AT THE END OF SEPTEMBER 2017
  6. SATIVEX [Concomitant]
     Active Substance: NABIXIMOLS
     Dosage: NK MG, 1-0-1-0, 1 DF
  7. ONDANSETRON [Concomitant]
     Active Substance: ONDANSETRON
     Dosage: 8 MG, 1-0-1-0
  8. PARACETAMOL [Concomitant]
     Active Substance: ACETAMINOPHEN
     Dosage: 1000 MG, 1-1-1-1
  9. VINORELBINE [Suspect]
     Active Substance: VINORELBINE TARTRATE
     Dosage: NK MG, NK; LAST AT THE END OF SEPTEMBER 2017
  10. MIRTAZAPIN 30 MG [Concomitant]
     Active Substance: MIRTAZAPINE
     Dosage: 30 MG, 0-0-0.5-0
  11. DEXAMETHASONE. [Concomitant]
     Active Substance: DEXAMETHASONE
     Dosage: 4 MG, 1-0-0-0
  12. LEVOTHYROXINE SODIUM. [Concomitant]
     Active Substance: LEVOTHYROXINE SODIUM
     Dosage: 50 MICROGRAM, 1-0-0-0
  13. TAVOR [Concomitant]
     Dosage: 1 MG, NEED
     Route: 048
  14. PREGABALIN. [Concomitant]
     Active Substance: PREGABALIN
     Dosage: 50 MG, 1-0-1-0
  15. PANTOPRAZOL [Concomitant]
     Active Substance: PANTOPRAZOLE SODIUM
     Dosage: 40 MG, 1-0-0-0
  16. METOPROLOL. [Concomitant]
     Active Substance: METOPROLOL
     Dosage: 47.5 MG, 1-0-1-0
  17. ATORVASTATIN [Concomitant]
     Active Substance: ATORVASTATIN
     Dosage: 40 MG, 0-0-1-0

REACTIONS (3)
  - Headache [Unknown]
  - Dysarthria [Unknown]
  - General physical health deterioration [Unknown]
